FAERS Safety Report 6444577-3 (Version None)
Quarter: 2009Q4

REPORT INFORMATION
  Report Type: 
  Country: None (occurrence: None)
  Receive Date: 20091118
  Receipt Date: 20090923
  Transmission Date: 20100525
  Serious: No
  Sender: FDA-Public Use
  Company Number: A0808683A

PATIENT
  Age: 86 Year
  Sex: Female

DRUGS (3)
  1. COREG CR [Suspect]
     Dosage: 1CAP ALTERNATE DAYS
     Route: 048
     Dates: start: 20090401
  2. VITAMIN B-12 [Concomitant]
  3. BABY ASPIRIN [Concomitant]

REACTIONS (2)
  - CHROMATURIA [None]
  - POLLAKIURIA [None]
